FAERS Safety Report 5885128-1 (Version None)
Quarter: 2008Q3

REPORT INFORMATION
  Report Type: 
  Country: None (occurrence: None)
  Receive Date: 20080916
  Receipt Date: 20080909
  Transmission Date: 20090109
  Serious: Yes (Death, Hospitalization, Disabling, Other)
  Sender: FDA-Public Use
  Company Number: US-MERCK-0509USA04014

PATIENT
  Age: 62 Year
  Sex: Female
  Weight: 86 kg

DRUGS (31)
  1. FOSAMAX [Suspect]
     Indication: OSTEOPOROSIS
     Route: 048
     Dates: start: 19980709, end: 20010509
  2. FOSAMAX [Suspect]
     Route: 048
     Dates: start: 20010509, end: 20060101
  3. FOSAMAX [Suspect]
     Indication: OSTEOARTHRITIS
     Route: 048
     Dates: start: 19980709, end: 20010509
  4. FOSAMAX [Suspect]
     Route: 048
     Dates: start: 20010509, end: 20060101
  5. DELTASONE [Concomitant]
     Route: 065
  6. RELAFEN [Concomitant]
     Route: 065
  7. DARVOCET-N 100 [Concomitant]
     Route: 065
  8. LASIX [Concomitant]
     Route: 065
     Dates: end: 20010201
  9. LASIX [Concomitant]
     Route: 065
     Dates: start: 20010201
  10. POTASSIUM CHLORIDE [Concomitant]
     Route: 065
     Dates: end: 20010201
  11. POTASSIUM CHLORIDE [Concomitant]
     Route: 065
     Dates: start: 20010201
  12. ARAVA [Concomitant]
     Route: 065
  13. DIOVAN [Concomitant]
     Route: 065
  14. ZIAC [Concomitant]
     Route: 065
  15. PREMPRO [Concomitant]
     Route: 065
  16. FOLIC ACID [Concomitant]
     Route: 065
  17. SYNTHROID [Concomitant]
     Route: 065
     Dates: start: 19650101
  18. CLARITIN [Concomitant]
     Route: 065
  19. PROSOM [Concomitant]
     Route: 065
  20. XANAX [Concomitant]
     Route: 065
  21. CENTRUM [Concomitant]
     Route: 065
  22. CITRACAL CAPLETS + D [Concomitant]
     Route: 065
  23. ASCORBIC ACID [Concomitant]
     Route: 065
  24. CYANOCOBALAMIN [Concomitant]
     Route: 065
  25. PREDNISONE [Concomitant]
     Route: 065
  26. VITAMIN E [Concomitant]
     Route: 065
  27. PYRIDOXINE [Concomitant]
     Route: 065
  28. ZINC (UNSPECIFIED) [Concomitant]
     Route: 065
  29. [THERAPY UNSPECIFIED] [Concomitant]
     Indication: RHEUMATOID ARTHRITIS
     Route: 065
     Dates: start: 19880101
  30. HORMONES (UNSPECIFIED) [Concomitant]
     Route: 065
     Dates: start: 19920101, end: 19950101
  31. CORTICOSTEROIDS (UNSPECIFIED) [Concomitant]
     Route: 065
     Dates: start: 19880101

REACTIONS (91)
  - ABSCESS [None]
  - ANAEMIA OF CHRONIC DISEASE [None]
  - ANGIOPATHY [None]
  - ANXIETY [None]
  - ARTHRITIS [None]
  - ARTHROPATHY [None]
  - ASTHENIA [None]
  - AUTOIMMUNE DISORDER [None]
  - CANDIDIASIS [None]
  - CARDIAC HYPERTROPHY [None]
  - CARDIOMEGALY [None]
  - CARPAL TUNNEL SYNDROME [None]
  - CEREBROVASCULAR ACCIDENT [None]
  - CHRONIC OBSTRUCTIVE PULMONARY DISEASE [None]
  - CONFUSIONAL STATE [None]
  - CONNECTIVE TISSUE DISORDER [None]
  - CYSTITIS KLEBSIELLA [None]
  - DEATH [None]
  - DECREASED APPETITE [None]
  - DECUBITUS ULCER [None]
  - DEEP VEIN THROMBOSIS [None]
  - DEHYDRATION [None]
  - DENTAL CARIES [None]
  - DEPRESSION [None]
  - DERMATITIS [None]
  - DEVICE BREAKAGE [None]
  - DEVICE FAILURE [None]
  - DIPLOPIA [None]
  - DYSPHAGIA [None]
  - FALL [None]
  - FISTULA [None]
  - GASTRIC POLYPS [None]
  - GASTRITIS EROSIVE [None]
  - GASTROINTESTINAL HAEMORRHAGE [None]
  - GASTROOESOPHAGEAL REFLUX DISEASE [None]
  - GINGIVITIS [None]
  - GOUT [None]
  - HAEMATOMA [None]
  - HYPERCOAGULATION [None]
  - HYPERGLYCAEMIA [None]
  - HYPERPHOSPHATAEMIA [None]
  - HYPERTENSION [None]
  - HYPERTRIGLYCERIDAEMIA [None]
  - HYPOAESTHESIA FACIAL [None]
  - HYPOAESTHESIA ORAL [None]
  - HYPOKALAEMIA [None]
  - IMPAIRED HEALING [None]
  - INTERVERTEBRAL DISC DEGENERATION [None]
  - IRON DEFICIENCY ANAEMIA [None]
  - JAW FRACTURE [None]
  - KLEBSIELLA INFECTION [None]
  - LEUKOCYTOSIS [None]
  - LUMBAR SPINAL STENOSIS [None]
  - MALAISE [None]
  - MENTAL STATUS CHANGES [None]
  - MOUTH ULCERATION [None]
  - NAUSEA [None]
  - OEDEMA [None]
  - OESOPHAGITIS [None]
  - ORAL DISORDER [None]
  - ORAL INFECTION [None]
  - OSTEOMYELITIS [None]
  - OSTEONECROSIS [None]
  - PAIN [None]
  - PATHOLOGICAL FRACTURE [None]
  - PNEUMONIA [None]
  - PNEUMONITIS [None]
  - POLYNEUROPATHY [None]
  - POOR PERSONAL HYGIENE [None]
  - POST PROCEDURAL COMPLICATION [None]
  - POST THROMBOTIC SYNDROME [None]
  - PRODUCTIVE COUGH [None]
  - PURULENCE [None]
  - RASH [None]
  - RENAL FAILURE [None]
  - RENAL FAILURE ACUTE [None]
  - RESPIRATORY DISORDER [None]
  - RESPIRATORY FAILURE [None]
  - SEPSIS SYNDROME [None]
  - SKIN LACERATION [None]
  - SPINAL OSTEOARTHRITIS [None]
  - SPONDYLOLISTHESIS [None]
  - STOMATITIS [None]
  - STREPTOCOCCAL INFECTION [None]
  - SUBCUTANEOUS HAEMATOMA [None]
  - THERAPEUTIC AGENT TOXICITY [None]
  - TOOTH FRACTURE [None]
  - TYPE 2 DIABETES MELLITUS [None]
  - URINARY TRACT INFECTION [None]
  - UROSEPSIS [None]
  - WOUND DEHISCENCE [None]
